FAERS Safety Report 23163132 (Version 1)
Quarter: 2023Q4

REPORT INFORMATION
  Report Type: Spontaneous
  Country: US (occurrence: US)
  Receive Date: 20231109
  Receipt Date: 20231109
  Transmission Date: 20240109
  Serious: Yes (Other)
  Sender: FDA-Public Use
  Company Number: US-ORGANON-O2311USA000447

PATIENT
  Sex: Female

DRUGS (1)
  1. ZETIA [Suspect]
     Active Substance: EZETIMIBE
     Dosage: UNK

REACTIONS (6)
  - Cardiac failure congestive [Unknown]
  - C-reactive protein increased [Unknown]
  - Oedema [Unknown]
  - Osteoarthritis [Unknown]
  - Hypertension [Unknown]
  - Peripheral venous disease [Unknown]
